FAERS Safety Report 8135968-3 (Version None)
Quarter: 2012Q1

REPORT INFORMATION
  Report Type: 
  Country: None (occurrence: None)
  Receive Date: 20120214
  Receipt Date: 20120207
  Transmission Date: 20120608
  Serious: Yes (Other)
  Sender: FDA-Public Use
  Company Number: US-BAYER-2011-107974

PATIENT
  Age: 21 Year
  Sex: Female

DRUGS (8)
  1. ADVAIR DISKUS 100/50 [Concomitant]
     Dosage: UNK UNK, QD
  2. LEXAPRO [Concomitant]
     Dosage: 10 MG, QD
  3. YAZ [Suspect]
     Dosage: UNK
     Route: 048
     Dates: start: 20060101, end: 20080401
  4. ASPIRIN [Concomitant]
  5. FLONASE [Concomitant]
     Dosage: UNK UNK, QD
     Route: 045
  6. CLARITIN [Concomitant]
     Dosage: 10 MG, QD
  7. BISMUTH SUBSALICYLATE [Concomitant]
  8. YASMIN [Suspect]
     Dosage: UNK
     Route: 048
     Dates: start: 20060101, end: 20080401

REACTIONS (9)
  - EMOTIONAL DISTRESS [None]
  - GASTROENTERITIS [None]
  - CHOLECYSTITIS CHRONIC [None]
  - ANXIETY [None]
  - GALLBLADDER INJURY [None]
  - GENERAL PHYSICAL HEALTH DETERIORATION [None]
  - CHOLELITHIASIS [None]
  - PAIN [None]
  - INJURY [None]
